FAERS Safety Report 20712630 (Version 1)
Quarter: 2022Q2

REPORT INFORMATION
  Report Type: Spontaneous
  Country: CA (occurrence: CA)
  Receive Date: 20220415
  Receipt Date: 20220415
  Transmission Date: 20220721
  Serious: Yes (Other)
  Sender: FDA-Public Use
  Company Number: CA-GLAXOSMITHKLINE-CACH2022AMR013709

PATIENT
  Sex: Male

DRUGS (4)
  1. IBUPROFEN [Suspect]
     Active Substance: IBUPROFEN
     Indication: Back pain
     Dosage: 600 MG
  2. DILAUDID [Suspect]
     Active Substance: HYDROMORPHONE HYDROCHLORIDE
     Indication: Back pain
     Dosage: UNK
     Route: 048
  3. OXYCONTIN [Suspect]
     Active Substance: OXYCODONE HYDROCHLORIDE
     Indication: Back pain
     Dosage: 400 MG, QD
  4. OXYCONTIN [Suspect]
     Active Substance: OXYCODONE HYDROCHLORIDE
     Dosage: 20 MG, TID

REACTIONS (4)
  - Drug dependence [Unknown]
  - Drug withdrawal syndrome [Unknown]
  - Emotional distress [Unknown]
  - Drug ineffective [Unknown]
